FAERS Safety Report 17667163 (Version 1)
Quarter: 2020Q2

REPORT INFORMATION
  Report Type: Spontaneous
  Country: US (occurrence: US)
  Receive Date: 20200414
  Receipt Date: 20200414
  Transmission Date: 20200713
  Serious: No
  Sender: FDA-Public Use
  Company Number: US-BAYER-2020-058942

PATIENT
  Age: 76 Year
  Sex: Male

DRUGS (4)
  1. WEIGHT GAINER [Concomitant]
  2. MINERALS [Concomitant]
     Active Substance: MINERALS
  3. VITAMINS NOS [Concomitant]
     Active Substance: VITAMINS
  4. MIRALAX [Suspect]
     Active Substance: POLYETHYLENE GLYCOL 3350
     Dosage: UNK
     Route: 048

REACTIONS (2)
  - Dysphagia [None]
  - Inappropriate schedule of product administration [None]
